FAERS Safety Report 9103159 (Version 1)
Quarter: 2013Q1

REPORT INFORMATION
  Report Type: Other
  Country: AU (occurrence: AU)
  Receive Date: 20130219
  Receipt Date: 20130219
  Transmission Date: 20140127
  Serious: Yes (Other)
  Sender: FDA-Public Use
  Company Number: AU-BRISTOL-MYERS SQUIBB COMPANY-17361056

PATIENT
  Age: 44 Year
  Sex: Male

DRUGS (5)
  1. ATAZANAVIR [Suspect]
     Indication: HIV INFECTION
  2. GARLIC [Interacting]
  3. RITONAVIR [Concomitant]
     Indication: HIV INFECTION
  4. EMTRICITABINE [Concomitant]
     Indication: HIV INFECTION
  5. LAMIVUDINE [Concomitant]
     Indication: HIV INFECTION

REACTIONS (2)
  - Virologic failure [Unknown]
  - Food interaction [Unknown]
